FAERS Safety Report 9945262 (Version 1)
Quarter: 2014Q1

REPORT INFORMATION
  Report Type: Report from Study
  Country: US (occurrence: US)
  Receive Date: 20140303
  Receipt Date: 20140303
  Transmission Date: 20141002
  Serious: No
  Sender: FDA-Public Use
  Company Number: US-ABBVIE-13P-163-1054659-00

PATIENT
  Age: 61 Year
  Sex: Female
  Weight: 73.09 kg

DRUGS (11)
  1. HUMIRA [Suspect]
     Indication: RHEUMATOID ARTHRITIS
     Dates: start: 201207
  2. LISINOPRIL HCTZ [Concomitant]
     Indication: HYPERTENSION
  3. CRESTOR [Concomitant]
     Indication: BLOOD CHOLESTEROL INCREASED
  4. METHOCARBAMOL [Concomitant]
     Indication: FIBROMYALGIA
  5. PREDNISONE [Concomitant]
     Indication: RHEUMATOID ARTHRITIS
     Dates: start: 2009
  6. DEXILANT DR [Concomitant]
     Indication: HIATUS HERNIA
  7. DEXILANT DR [Concomitant]
     Indication: GASTROOESOPHAGEAL REFLUX DISEASE
  8. PAXIL [Concomitant]
     Indication: DEPRESSION
     Dates: start: 1998
  9. PAXIL [Concomitant]
     Indication: PANIC DISORDER
  10. TRAZODONE [Concomitant]
     Indication: FIBROMYALGIA
     Dosage: NIGHTLY
  11. HYDROXYCHLOROQUINE [Concomitant]
     Indication: RHEUMATOID ARTHRITIS
     Dates: start: 2008

REACTIONS (7)
  - Fatigue [Not Recovered/Not Resolved]
  - Rheumatoid arthritis [Recovered/Resolved]
  - Local swelling [Not Recovered/Not Resolved]
  - Paraesthesia [Not Recovered/Not Resolved]
  - Paraesthesia [Not Recovered/Not Resolved]
  - Back pain [Not Recovered/Not Resolved]
  - Nausea [Not Recovered/Not Resolved]
